FAERS Safety Report 19698085 (Version 1)
Quarter: 2021Q3

REPORT INFORMATION
  Report Type: Spontaneous
  Country: DE (occurrence: DE)
  Receive Date: 20210812
  Receipt Date: 20210812
  Transmission Date: 20211014
  Serious: Yes (Hospitalization)
  Sender: FDA-Public Use
  Company Number: DE-ESPERIONTHERAPEUTICS-2021DEU01596

PATIENT
  Age: 67 Year
  Sex: Female
  Weight: 89 kg

DRUGS (1)
  1. NUSTENDI [Suspect]
     Active Substance: BEMPEDOIC ACID\EZETIMIBE
     Indication: BLOOD CHOLESTEROL INCREASED
     Dosage: 180/10 MG
     Route: 048
     Dates: start: 20210504, end: 20210711

REACTIONS (3)
  - Transient global amnesia [Recovered/Resolved]
  - Memory impairment [Unknown]
  - Aphasia [Unknown]

NARRATIVE: CASE EVENT DATE: 20210529
